FAERS Safety Report 14831266 (Version 2)
Quarter: 2018Q2

REPORT INFORMATION
  Report Type: Report from Study
  Country: DE (occurrence: DE)
  Receive Date: 20180501
  Receipt Date: 20180629
  Transmission Date: 20180711
  Serious: Yes (Other)
  Sender: FDA-Public Use
  Company Number: DE-TEVA-2018-DE-886563

PATIENT
  Age: 54 Year
  Sex: Female
  Weight: 90 kg

DRUGS (7)
  1. COSENTYX [Suspect]
     Active Substance: SECUKINUMAB
     Indication: PSORIATIC ARTHROPATHY
     Route: 042
     Dates: start: 20170331
  2. ZINC SOLUTION [Concomitant]
     Route: 061
     Dates: start: 20170901
  3. FOLCUR [Concomitant]
     Route: 048
     Dates: start: 20170612
  4. COSENTYX [Suspect]
     Active Substance: SECUKINUMAB
     Dosage: 300 MG, PER APPLICATION, PRE-FILLED SYRINGE
     Route: 065
     Dates: start: 20170915
  5. DICLOFENAC SODIUM. [Suspect]
     Active Substance: DICLOFENAC SODIUM
     Indication: PSORIATIC ARTHROPATHY
     Dosage: 100 MILLIGRAM DAILY;
     Route: 048
     Dates: start: 20170915
  6. OPIPRAMOL [Concomitant]
     Active Substance: OPIPRAMOL
     Route: 048
  7. METHOTREXATE. [Concomitant]
     Active Substance: METHOTREXATE
     Dosage: 10 MG, QW
     Route: 058
     Dates: start: 20170612

REACTIONS (5)
  - Laryngitis [Recovered/Resolved]
  - Headache [Not Recovered/Not Resolved]
  - Bronchitis [Recovered/Resolved]
  - Nocturia [Not Recovered/Not Resolved]
  - Psoriatic arthropathy [Not Recovered/Not Resolved]

NARRATIVE: CASE EVENT DATE: 20170601
